FAERS Safety Report 8881640 (Version 2)
Quarter: 2012Q4

REPORT INFORMATION
  Report Type: Report from Study
  Country: KR (occurrence: KR)
  Receive Date: 20121102
  Receipt Date: 20121116
  Transmission Date: 20130627
  Serious: Yes (Hospitalization)
  Sender: FDA-Public Use
  Company Number: KR-BAYER-2012-038919

PATIENT
  Age: 55 Year
  Sex: Male
  Weight: 73 kg

DRUGS (23)
  1. SORAFENIB (RAF KINASE INHIBITOR) [Suspect]
     Indication: GASTRIC CANCER
     Dosage: 400 mg, BID
     Dates: start: 20120322, end: 20120405
  2. SORAFENIB (RAF KINASE INHIBITOR) [Suspect]
     Indication: GASTRIC CANCER
     Dosage: 400 mg, BID
     Dates: start: 20120823, end: 20120913
  3. SORAFENIB (RAF KINASE INHIBITOR) [Suspect]
     Indication: GASTRIC CANCER
     Dosage: UNK
     Dates: start: 20120925
  4. SORAFENIB (RAF KINASE INHIBITOR) [Suspect]
     Indication: GASTRIC CANCER
     Dosage: 400 mg, BID
     Dates: start: 20121016, end: 20121020
  5. CAPECITABINE [Suspect]
     Indication: GASTRIC CANCER
     Dosage: 3000 mg/d, BID
     Dates: start: 20120322, end: 20120405
  6. CAPECITABINE [Suspect]
     Indication: GASTRIC CANCER
     Dosage: 1500 mg, BID
     Dates: start: 20120823, end: 20120906
  7. CAPECITABINE [Suspect]
     Indication: GASTRIC CANCER
     Dosage: UNK
     Dates: start: 20120925
  8. CAPECITABINE [Suspect]
     Indication: GASTRIC CANCER
     Dosage: 1500 mg, BID
     Dates: start: 20121016, end: 20121020
  9. CISPLATIN [Suspect]
     Indication: GASTRIC CANCER
     Dosage: 116 mg/d, QD
     Dates: start: 20120322
  10. CISPLATIN [Suspect]
     Indication: GASTRIC CANCER
     Dosage: 116 mg, QD
     Dates: start: 20120823
  11. CISPLATIN [Suspect]
     Indication: GASTRIC CANCER
     Dosage: UNK
     Dates: start: 20120925
  12. CISPLATIN [Suspect]
     Indication: GASTRIC CANCER
     Dosage: 116 mg, QD
     Dates: start: 20121016
  13. MAXIPIME [Concomitant]
     Indication: PROPHYLACTIC
     Dosage: UNK
     Dates: start: 20120913, end: 20120920
  14. CRAVIT [Concomitant]
     Indication: PROPHYLACTIC
     Dosage: UNK
     Dates: start: 20020913, end: 20120915
  15. LYRICA [Concomitant]
     Indication: PROPHYLACTIC
     Dosage: UNK
     Dates: start: 20120913, end: 20120925
  16. TIROPA [Concomitant]
     Indication: PROPHYLACTIC
     Dosage: UNK
     Dates: start: 20121021, end: 20121025
  17. CEFOTAM [Concomitant]
     Indication: PROPHYLACTIC
     Dosage: UNK
     Dates: start: 20121022, end: 20121024
  18. SMOFLIPID [Concomitant]
     Indication: PROPHYLACTIC
     Dosage: UNK
     Dates: start: 20121022, end: 20121022
  19. SMOFLIPID [Concomitant]
     Indication: PROPHYLACTIC
     Dosage: UNK
     Dates: start: 20121023, end: 20121025
  20. MUCOPECT [Concomitant]
     Indication: PROPHYLACTIC
     Dosage: UNK
     Dates: start: 20121022
  21. CLOPERASTINE [Concomitant]
     Indication: PROPHYLACTIC
     Dosage: UNK
     Dates: start: 20121024
  22. DIPEPTIVEN [Concomitant]
     Indication: PROPHYLACTIC
     Dosage: UNK
     Dates: start: 20121023, end: 20121025
  23. ANTIBIOTICS [Concomitant]
     Dosage: UNK

REACTIONS (4)
  - Abdominal pain [Recovering/Resolving]
  - Aspiration [Recovered/Resolved with Sequelae]
  - Diarrhoea [Recovered/Resolved with Sequelae]
  - Pneumonia [None]
